FAERS Safety Report 6310359-6 (Version None)
Quarter: 2009Q3

REPORT INFORMATION
  Report Type: 
  Country: None (occurrence: None)
  Receive Date: 20090811
  Receipt Date: 20090803
  Transmission Date: 20100115
  Serious: Yes (Other)
  Sender: FDA-Public Use
  Company Number: IPS_01703_2009

PATIENT
  Sex: Female

DRUGS (2)
  1. APOKYN [Suspect]
     Indication: PARKINSON'S DISEASE
     Dosage: 0.2 ML SUBCUTANEOUS
     Route: 058
  2. TIGAN [Concomitant]

REACTIONS (7)
  - ANXIETY [None]
  - FATIGUE [None]
  - HEADACHE [None]
  - MUSCULOSKELETAL STIFFNESS [None]
  - NAUSEA [None]
  - PHARYNGEAL OEDEMA [None]
  - SOMNOLENCE [None]
